FAERS Safety Report 13778776 (Version 1)
Quarter: 2017Q3

REPORT INFORMATION
  Report Type: Report from Study
  Country: BR (occurrence: BR)
  Receive Date: 20170721
  Receipt Date: 20170721
  Transmission Date: 20171127
  Serious: Yes (Hospitalization, Other)
  Sender: FDA-Public Use
  Company Number: PHHY2017BR107096

PATIENT
  Sex: Female

DRUGS (2)
  1. FORASEQ [Suspect]
     Active Substance: BUDESONIDE\FORMOTEROL FUMARATE
     Indication: RESPIRATORY DISORDER
     Dosage: 2 DF (BUDESONIDE 400 UG/ FORMOTEROL FUMARATE 12 UG), QD
     Route: 055
  2. FORASEQ [Suspect]
     Active Substance: BUDESONIDE\FORMOTEROL FUMARATE
     Dosage: 3 DF (BUDESONIDE 400 UG/ FORMOTEROL FUMARATE 12 UG), QD
     Route: 055

REACTIONS (6)
  - Product use in unapproved indication [Unknown]
  - Diabetes mellitus [Unknown]
  - Fatigue [Unknown]
  - Gait inability [Recovering/Resolving]
  - Wound [Recovering/Resolving]
  - Animal bite [Recovering/Resolving]
